FAERS Safety Report 5078256-4 (Version None)
Quarter: 2006Q3

REPORT INFORMATION
  Report Type: 
  Country: None (occurrence: None)
  Receive Date: 20060811
  Receipt Date: 20060612
  Transmission Date: 20061208
  Serious: Yes (Hospitalization)
  Sender: FDA-Public Use
  Company Number: CA-AMGEN-US182534

PATIENT
  Sex: Male

DRUGS (6)
  1. ENBREL [Suspect]
     Indication: PSORIATIC ARTHROPATHY
     Route: 058
     Dates: start: 20051109, end: 20060502
  2. LOSEC [Suspect]
     Dates: start: 19970101
  3. METHOTREXATE [Concomitant]
     Dates: start: 20020207, end: 20060501
  4. ATENOLOL [Concomitant]
     Dates: start: 19961001
  5. LIPITOR [Concomitant]
     Dates: start: 19961001
  6. SULINDAC [Concomitant]
     Dates: start: 20060208

REACTIONS (2)
  - METASTATIC NEOPLASM [None]
  - NON-SMALL CELL LUNG CANCER STAGE IIIB [None]
